FAERS Safety Report 9913263 (Version 2)
Quarter: 2014Q2

REPORT INFORMATION
  Report Type: Spontaneous
  Country: GB (occurrence: GB)
  Receive Date: 20140220
  Receipt Date: 20140504
  Transmission Date: 20141212
  Serious: Yes (Death, Hospitalization)
  Sender: FDA-Public Use
  Company Number: GB-BRISTOL-MYERS SQUIBB COMPANY-20184230

PATIENT
  Age: 64 Year
  Sex: Female
  Weight: 83 kg

DRUGS (9)
  1. ELIQUIS [Suspect]
     Indication: ATRIAL FIBRILLATION
     Route: 048
     Dates: start: 20130611, end: 20130802
  2. ATORVASTATIN [Concomitant]
  3. ENALAPRIL MALEATE [Concomitant]
  4. EZETIMIBE [Concomitant]
  5. FUROSEMIDE [Concomitant]
  6. ISOSORBIDE [Concomitant]
  7. LANSOPRAZOLE [Concomitant]
  8. TOLTERODINE [Concomitant]
  9. VERAPAMIL HCL [Concomitant]

REACTIONS (1)
  - Renal failure acute [Fatal]
